FAERS Safety Report 17112241 (Version 1)
Quarter: 2019Q4

REPORT INFORMATION
  Report Type: Spontaneous
  Country: US (occurrence: US)
  Receive Date: 20191204
  Receipt Date: 20191204
  Transmission Date: 20200122
  Serious: No
  Sender: FDA-Public Use
  Company Number: US-TEVA-2019-US-1145772

PATIENT
  Age: 16 Year
  Sex: Male

DRUGS (2)
  1. DEXMETHYLPHENIDATE HYDRCHLORIDE EXTENDED RELEASE CAPSULES [Suspect]
     Active Substance: DEXMETHYLPHENIDATE HYDROCHLORIDE
     Indication: ATTENTION DEFICIT/HYPERACTIVITY DISORDER
     Dates: start: 2015
  2. SHORT ACTING RITALIN [Concomitant]

REACTIONS (6)
  - Nausea [Unknown]
  - Cyanosis [Unknown]
  - Appetite disorder [Unknown]
  - Adverse drug reaction [Unknown]
  - Peripheral coldness [Unknown]
  - Malaise [Unknown]

NARRATIVE: CASE EVENT DATE: 201910
